FAERS Safety Report 20028036 (Version 2)
Quarter: 2021Q4

REPORT INFORMATION
  Report Type: Report from Study
  Country: JP (occurrence: JP)
  Receive Date: 20211103
  Receipt Date: 20211202
  Transmission Date: 20220303
  Serious: Yes (Hospitalization, Other)
  Sender: FDA-Public Use
  Company Number: JP-AUROBINDO-AUR-APL-2021-045673

PATIENT
  Age: 73 Year
  Sex: Male
  Weight: 42.8 kg

DRUGS (3)
  1. FOLOTYN [Suspect]
     Active Substance: PRALATREXATE
     Indication: Peripheral T-cell lymphoma unspecified stage IV
     Dosage: 30 MILLIGRAM/SQ. METER
     Route: 042
     Dates: start: 20200904, end: 20200909
  2. FOLIC ACID [Concomitant]
     Active Substance: FOLIC ACID
     Indication: Product used for unknown indication
     Dosage: UNK
     Route: 065
     Dates: start: 20200903, end: 20200912
  3. VITAMIN B12 [Concomitant]
     Active Substance: CYANOCOBALAMIN
     Indication: Product used for unknown indication
     Dosage: UNK
     Route: 065
     Dates: start: 20200903, end: 20200909

REACTIONS (2)
  - Oral disorder [Recovering/Resolving]
  - Gastrointestinal infection [Recovering/Resolving]

NARRATIVE: CASE EVENT DATE: 20200907
